FAERS Safety Report 15015326 (Version 1)
Quarter: 2018Q2

REPORT INFORMATION
  Report Type: Spontaneous
  Country: FR (occurrence: FR)
  Receive Date: 20180615
  Receipt Date: 20180615
  Transmission Date: 20180711
  Serious: Yes (Hospitalization)
  Sender: FDA-Public Use
  Company Number: FR-TEVA-2018-FR-907529

PATIENT
  Age: 82 Year
  Sex: Female
  Weight: 42 kg

DRUGS (11)
  1. RISEDRONATE MONOSODIQUE ANHYDRE [Concomitant]
     Active Substance: RISEDRONIC ACID
     Route: 065
  2. PROPRANOLOL [Concomitant]
     Active Substance: PROPRANOLOL HYDROCHLORIDE
     Route: 065
  3. ROXITHROMYCINE [Suspect]
     Active Substance: ROXITHROMYCIN
     Indication: TONSILLITIS
     Route: 048
     Dates: start: 20180130
  4. NEURONTIN [Concomitant]
     Active Substance: GABAPENTIN
     Route: 065
  5. CALCIDOSE [Concomitant]
     Active Substance: CALCIUM CARBONATE
     Route: 065
  6. KARDEGIC [Concomitant]
     Active Substance: ASPIRIN DL-LYSINE
     Route: 065
  7. AMOXICILLIN. [Suspect]
     Active Substance: AMOXICILLIN
     Indication: TONSILLITIS
     Route: 048
     Dates: start: 20180108, end: 20180116
  8. PARAFFINE LIQUIDE [Concomitant]
     Route: 065
  9. CHOLURSO [Concomitant]
     Active Substance: URSODIOL
     Route: 065
  10. ANASTROZOLE. [Suspect]
     Active Substance: ANASTROZOLE
     Indication: BREAST CANCER
     Dosage: 1 DOSAGE FORMS DAILY;
     Route: 048
  11. PANTOPRAZOLE [Concomitant]
     Active Substance: PANTOPRAZOLE
     Route: 065

REACTIONS (2)
  - Hepatitis [Not Recovered/Not Resolved]
  - Jaundice [Not Recovered/Not Resolved]

NARRATIVE: CASE EVENT DATE: 20180207
